FAERS Safety Report 5299952-X (Version None)
Quarter: 2007Q2

REPORT INFORMATION
  Report Type: 
  Country: None (occurrence: None)
  Receive Date: 20070417
  Receipt Date: 20070404
  Transmission Date: 20071010
  Serious: Yes (Hospitalization)
  Sender: FDA-Public Use
  Company Number: US-AMGEN-STX218259

PATIENT
  Sex: Female

DRUGS (4)
  1. ENBREL [Suspect]
     Indication: RHEUMATOID ARTHRITIS
     Route: 058
     Dates: start: 20040404
  2. ENBREL [Suspect]
     Indication: PSORIATIC ARTHROPATHY
  3. PLAQUENIL [Concomitant]
     Route: 065
     Dates: start: 20040101
  4. METHOTREXATE [Concomitant]
     Route: 065
     Dates: start: 20040101

REACTIONS (2)
  - LUNG NEOPLASM MALIGNANT [None]
  - PROCEDURAL COMPLICATION [None]
